FAERS Safety Report 5054756-8 (Version None)
Quarter: 2006Q3

REPORT INFORMATION
  Report Type: 
  Country: None (occurrence: None)
  Receive Date: 20060717
  Receipt Date: 20060616
  Transmission Date: 20061208
  Serious: Yes (Other)
  Sender: FDA-Public Use
  Company Number: 2783

PATIENT
  Age: 15 Year
  Sex: Male

DRUGS (2)
  1. AMNESTEEM [Suspect]
     Indication: ACNE
     Dosage: 20 MG QD PO; 40 MG QD PO
     Route: 048
     Dates: start: 20060426, end: 20060531
  2. AMNESTEEM [Suspect]
     Indication: ACNE
     Dosage: 20 MG QD PO; 40 MG QD PO
     Route: 048
     Dates: start: 20060426, end: 20060531

REACTIONS (2)
  - EOSINOPHIL PERCENTAGE INCREASED [None]
  - NEUTROPHIL PERCENTAGE DECREASED [None]
